FAERS Safety Report 20480695 (Version 2)
Quarter: 2022Q1

REPORT INFORMATION
  Report Type: Spontaneous
  Country: GR (occurrence: GR)
  Receive Date: 20220216
  Receipt Date: 20220330
  Transmission Date: 20220423
  Serious: Yes (Other)
  Sender: FDA-Public Use
  Company Number: GR-NOVARTISPH-NVSC2022GR032758

PATIENT

DRUGS (2)
  1. BROLUCIZUMAB [Suspect]
     Active Substance: BROLUCIZUMAB
     Indication: Antiangiogenic therapy
     Dosage: TREATMENT WITH BROLUCIZUMAB IN OD
     Route: 065
     Dates: start: 202103
  2. BROLUCIZUMAB [Suspect]
     Active Substance: BROLUCIZUMAB
     Dosage: TREATMENT WITH BROLUCIZUMAB IN OS
     Route: 065
     Dates: start: 202104

REACTIONS (2)
  - Retinal neovascularisation [Unknown]
  - Product use issue [Unknown]
